FAERS Safety Report 8881121 (Version 5)
Quarter: 2015Q4

REPORT INFORMATION
  Report Type: Report from Study
  Country: JP (occurrence: JP)
  Receive Date: 20121101
  Receipt Date: 20151110
  Transmission Date: 20160305
  Serious: Yes (Hospitalization)
  Sender: FDA-Public Use
  Company Number: JP-PFIZER INC-2012242038

PATIENT
  Age: 71 Year
  Sex: Female
  Weight: 48 kg

DRUGS (11)
  1. VITAMEDIN CAPSULE [Concomitant]
     Dosage: 1 CAPSULE, 3X/DAY
     Route: 048
  2. FAMOTIDINE D [Concomitant]
     Active Substance: FAMOTIDINE
     Dosage: 10 MG, 2X/DAY
     Route: 048
  3. XALKORI [Suspect]
     Active Substance: CRIZOTINIB
     Indication: NON-SMALL CELL LUNG CANCER
     Dosage: 200 MG, 2X/DAY
     Route: 048
     Dates: start: 20120719, end: 20120723
  4. AMLODIPINE [Concomitant]
     Active Substance: AMLODIPINE BESYLATE
     Dosage: 5 MG, 1X/DAY
     Route: 048
  5. PRIMPERAN [Concomitant]
     Active Substance: METOCLOPRAMIDE HYDROCHLORIDE
     Dosage: 5 MG, 3X/DAY
     Route: 048
     Dates: start: 20120720
  6. BIO-THREE [Concomitant]
     Active Substance: HERBALS
     Dosage: 1 TABLET, 3X/DAY
     Route: 048
  7. ALBUMIN TANNATE [Concomitant]
     Active Substance: ALBUMIN BOVINE\TANNIC ACID
     Dosage: 1 G, 2X/DAY
     Route: 048
  8. PURSENNID [Concomitant]
     Active Substance: SENNOSIDES A AND B
     Dosage: 12 MG, AS NEEDED
     Route: 048
     Dates: start: 20120725
  9. XALKORI [Suspect]
     Active Substance: CRIZOTINIB
     Dosage: 250 MG, 2X/DAY
     Route: 048
     Dates: start: 20120724, end: 20120901
  10. XYZAL [Concomitant]
     Active Substance: LEVOCETIRIZINE DIHYDROCHLORIDE
     Dosage: 5 MG, 1X/DAY
     Route: 048
  11. PREDONINE [Concomitant]
     Active Substance: PREDNISOLONE\PREDNISOLONE ACETATE\PREDNISOLONE SODIUM SUCCINATE
     Dosage: 5 MG, 2X/DAY
     Route: 048

REACTIONS (1)
  - Interstitial lung disease [Recovering/Resolving]

NARRATIVE: CASE EVENT DATE: 20120828
